FAERS Safety Report 8624115-7 (Version None)
Quarter: 2012Q3

REPORT INFORMATION
  Report Type: 
  Country: None (occurrence: None)
  Receive Date: 20120824
  Receipt Date: 20120824
  Transmission Date: 20120928
  Serious: Yes (Hospitalization)
  Sender: FDA-Public Use
  Company Number: None

PATIENT
  Age: 62 Year
  Sex: Male
  Weight: 55 kg

DRUGS (4)
  1. RIDAFOROLIMUS [Suspect]
     Dosage: 10 MG PO DAY 12-5
     Route: 048
  2. PACLITAXEL [Suspect]
     Dates: start: 20120730, end: 20120803
  3. PACLITAXEL [Suspect]
     Dates: start: 20120723, end: 20120727
  4. SUBOXONE [Suspect]
     Dosage: 135/M2/AUC 5
     Route: 060
     Dates: start: 20120723, end: 20120723

REACTIONS (4)
  - HEADACHE [None]
  - NAUSEA [None]
  - COUGH [None]
  - PERFORMANCE STATUS DECREASED [None]
